FAERS Safety Report 4553118-7 (Version None)
Quarter: 2005Q1

REPORT INFORMATION
  Report Type: 
  Country: None (occurrence: None)
  Receive Date: 20050113
  Receipt Date: 20050104
  Transmission Date: 20050727
  Serious: Yes (Hospitalization)
  Sender: FDA-Public Use
  Company Number: 2005PK00043

PATIENT
  Age: 43 Year
  Sex: Female
  Weight: 55 kg

DRUGS (3)
  1. ATACAND PLUS [Suspect]
     Indication: HYPERTENSION
     Dosage: 16/12.5 MG
     Dates: end: 20020707
  2. BISOPROLOL FUMARATE [Concomitant]
  3. NORVASC [Concomitant]

REACTIONS (8)
  - ABDOMINAL PAIN [None]
  - HAEMOLYTIC URAEMIC SYNDROME [None]
  - MENTAL DISORDER [None]
  - NAUSEA [None]
  - RENAL FAILURE ACUTE [None]
  - STAPHYLOCOCCAL INFECTION [None]
  - THROMBOTIC THROMBOCYTOPENIC PURPURA [None]
  - VOMITING [None]
